FAERS Safety Report 9663132 (Version 1)
Quarter: 2013Q4

REPORT INFORMATION
  Report Type: Spontaneous
  Country: US (occurrence: US)
  Receive Date: 20131101
  Receipt Date: 20131101
  Transmission Date: 20140711
  Serious: Yes (Hospitalization, Other)
  Sender: FDA-Public Use
  Company Number: US-009507513-1310USA013915

PATIENT
  Age: 46 Year
  Sex: Female

DRUGS (4)
  1. JANUMET XR [Suspect]
     Indication: TYPE 2 DIABETES MELLITUS
     Route: 048
  2. CRESTOR [Concomitant]
  3. IMDUR [Concomitant]
     Route: 048
  4. BYSTOLIC [Concomitant]

REACTIONS (1)
  - Pancreatitis [Recovered/Resolved]
